FAERS Safety Report 10224301 (Version 1)
Quarter: 2014Q2

REPORT INFORMATION
  Report Type: Spontaneous
  Country: US (occurrence: US)
  Receive Date: 20140609
  Receipt Date: 20140609
  Transmission Date: 20141212
  Serious: No
  Sender: FDA-Public Use
  Company Number: US-PFIZER INC-2014155290

PATIENT
  Sex: Female

DRUGS (4)
  1. NEURONTIN [Suspect]
     Indication: NEURALGIA
     Dosage: 300 MG, UNK
  2. HYDROCODONE [Concomitant]
     Indication: ARTHRALGIA
     Dosage: UNK
  3. FENTANYL [Concomitant]
     Indication: ARTHRALGIA
     Dosage: UNK
  4. FENTANYL [Concomitant]
     Indication: NERVE COMPRESSION

REACTIONS (1)
  - Abdominal discomfort [Unknown]
